FAERS Safety Report 10105008 (Version 2)
Quarter: 2014Q2

REPORT INFORMATION
  Report Type: Other
  Country: US (occurrence: US)
  Receive Date: 20140424
  Receipt Date: 20140609
  Transmission Date: 20141212
  Serious: Yes (Death, Other)
  Sender: FDA-Public Use
  Company Number: US-GSKPPD-2014GSK000600

PATIENT
  Age: 55 Year
  Sex: Male

DRUGS (5)
  1. AVANDIA [Suspect]
     Indication: DIABETES MELLITUS
     Dosage: AVANDIA WAS NOT LISTED AMONG THE PATIENTS DISCHARGE RECORDS.
     Route: 048
  2. MICRONASE [Concomitant]
  3. DIGOXIN [Concomitant]
  4. LASIX [Concomitant]
  5. ASPIRIN [Concomitant]

REACTIONS (1)
  - Myocardial infarction [Fatal]
